FAERS Safety Report 25123679 (Version 1)
Quarter: 2025Q1

REPORT INFORMATION
  Report Type: Spontaneous
  Country: US (occurrence: None)
  Receive Date: 20250326
  Receipt Date: 20250326
  Transmission Date: 20250408
  Serious: Yes (Hospitalization)
  Sender: FDA-CTU
  Company Number: None

PATIENT
  Age: 71 Year
  Sex: Male
  Weight: 117.3 kg

DRUGS (2)
  1. DARATUMUMAB\HYALURONIDASE-FIHJ [Suspect]
     Active Substance: DARATUMUMAB\HYALURONIDASE-FIHJ
     Dates: start: 20240416, end: 20250211
  2. LENALIDOMIDE [Concomitant]
     Active Substance: LENALIDOMIDE

REACTIONS (11)
  - Pneumonia [None]
  - Acute myocardial infarction [None]
  - Atrial fibrillation [None]
  - Pneumonia [None]
  - Cellulitis [None]
  - Gout [None]
  - Arthritis bacterial [None]
  - Pain in extremity [None]
  - Oedema [None]
  - Erythema [None]
  - Swelling [None]

NARRATIVE: CASE EVENT DATE: 20250315
